FAERS Safety Report 5123530-6 (Version None)
Quarter: 2006Q4

REPORT INFORMATION
  Report Type: 
  Country: None (occurrence: None)
  Receive Date: 20061010
  Receipt Date: 20060929
  Transmission Date: 20070319
  Serious: Yes (Death)
  Sender: FDA-Public Use
  Company Number: US-JNJFOC-20060401617

PATIENT
  Sex: Female
  Weight: 32 kg

DRUGS (4)
  1. REMICADE [Suspect]
     Indication: CROHN'S DISEASE
     Route: 042
  2. PREDNISONE [Concomitant]
     Indication: CROHN'S DISEASE
  3. TYLENOL [Concomitant]
     Indication: CROHN'S DISEASE
  4. BENADRYL [Concomitant]
     Indication: CROHN'S DISEASE

REACTIONS (1)
  - DEATH [None]
